FAERS Safety Report 18689582 (Version 1)
Quarter: 2020Q4

REPORT INFORMATION
  Report Type: Spontaneous
  Country: AU (occurrence: AU)
  Receive Date: 20201231
  Receipt Date: 20201231
  Transmission Date: 20210114
  Serious: Yes (Other)
  Sender: FDA-Public Use
  Company Number: AU-ALLERGAN-2049065US

PATIENT
  Sex: Female

DRUGS (5)
  1. BOTOX [Suspect]
     Active Substance: ONABOTULINUMTOXINA
     Indication: HEADACHE
     Dosage: UNK, SINGLE
  2. BOTOX [Suspect]
     Active Substance: ONABOTULINUMTOXINA
     Indication: MIGRAINE
  3. AIMOVIG [Suspect]
     Active Substance: ERENUMAB-AOOE
     Indication: HEADACHE
     Dosage: UNK
     Dates: end: 2020
  4. ANALGESIC [Concomitant]
     Active Substance: UNSPECIFIED INGREDIENT
  5. TOPAMAX [Concomitant]
     Active Substance: TOPIRAMATE

REACTIONS (8)
  - Fall [Unknown]
  - Nausea [Unknown]
  - Pain [Unknown]
  - Headache [Recovering/Resolving]
  - Therapeutic response shortened [Unknown]
  - Neuropathy peripheral [Unknown]
  - Housebound [Unknown]
  - Migraine [Recovering/Resolving]
